FAERS Safety Report 5458661-4 (Version None)
Quarter: 2007Q3

REPORT INFORMATION
  Report Type: 
  Country: None (occurrence: None)
  Receive Date: 20070919
  Receipt Date: 20070420
  Transmission Date: 20080115
  Serious: No
  Sender: FDA-Public Use
  Company Number: US-ASTRAZENECA-2007UW07832

PATIENT
  Age: 29 Year
  Sex: Female
  Weight: 87.3 kg

DRUGS (6)
  1. SEROQUEL [Suspect]
     Indication: BIPOLAR DISORDER
     Route: 048
     Dates: start: 20030101, end: 20050101
  2. SEROQUEL [Suspect]
     Indication: DEPRESSION
     Route: 048
     Dates: start: 20030101, end: 20050101
  3. LITHIUM [Suspect]
     Dates: start: 20050101, end: 20070101
  4. ABILIFY [Concomitant]
     Dates: start: 20060101
  5. RISPERDAL [Concomitant]
     Dates: start: 20040101, end: 20060101
  6. DEPAKOTE [Concomitant]
     Dates: start: 20030101, end: 20040101

REACTIONS (5)
  - BLOOD CHOLESTEROL INCREASED [None]
  - BLOOD TRIGLYCERIDES INCREASED [None]
  - DIABETES MELLITUS [None]
  - FATIGUE [None]
  - HYPERLIPIDAEMIA [None]
